FAERS Safety Report 16639386 (Version 1)
Quarter: 2019Q3

REPORT INFORMATION
  Report Type: Spontaneous
  Country: CN (occurrence: CN)
  Receive Date: 20190726
  Receipt Date: 20190726
  Transmission Date: 20191004
  Serious: Yes (Death)
  Sender: FDA-Public Use
  Company Number: CN-B.I. PHARMACEUTICALS,INC./RIDGEFIELD-2019-BI-031170

PATIENT
  Age: 49 Year
  Sex: Female

DRUGS (2)
  1. GILOTRIF [Suspect]
     Active Substance: AFATINIB
     Indication: METASTASES TO LUNG
     Route: 065
  2. GILOTRIF [Suspect]
     Active Substance: AFATINIB
     Route: 065

REACTIONS (5)
  - Gastric haemorrhage [Fatal]
  - Intestinal obstruction [Fatal]
  - Diarrhoea [Unknown]
  - Disseminated intravascular coagulation [Fatal]
  - Intestinal sepsis [Fatal]
